FAERS Safety Report 4966821-1 (Version None)
Quarter: 2006Q2

REPORT INFORMATION
  Report Type: 
  Country: None (occurrence: None)
  Receive Date: 20060407
  Receipt Date: 20030605
  Transmission Date: 20061013
  Serious: Yes (Hospitalization, Other)
  Sender: FDA-Public Use
  Company Number: US-MERCK-0306USA00773

PATIENT
  Age: 43 Year
  Sex: Female
  Weight: 110 kg

DRUGS (20)
  1. VIOXX [Suspect]
     Indication: MIGRAINE
     Route: 048
     Dates: start: 20010618, end: 20031101
  2. VIOXX [Suspect]
     Route: 048
  3. VIOXX [Suspect]
     Indication: ARTHRITIS
     Route: 048
     Dates: start: 20010618, end: 20031101
  4. VIOXX [Suspect]
     Route: 048
  5. AMITRIPTYLINE HYDROCHLORIDE [Concomitant]
     Route: 065
  6. VERAPAMIL [Concomitant]
     Indication: HYPERTENSION
     Route: 065
  7. METOPROLOL TARTRATE [Concomitant]
     Route: 065
  8. ENALAPRIL MALEATE [Concomitant]
     Route: 065
  9. PRILOSEC [Concomitant]
     Route: 065
  10. GLUCOPHAGE [Concomitant]
     Route: 048
  11. PROCHLORPERAZINE [Concomitant]
     Route: 065
  12. DOXEPIN HYDROCHLORIDE [Concomitant]
     Route: 065
  13. FIORICET TABLETS [Concomitant]
     Route: 065
  14. ECHINACEA [Concomitant]
     Route: 065
  15. GARLIC EXTRACT [Concomitant]
     Route: 065
  16. ASCORBIC ACID [Concomitant]
     Route: 065
  17. VITAMINS (UNSPECIFIED) [Concomitant]
     Route: 065
  18. PREDNISONE [Concomitant]
     Route: 065
  19. INSULIN [Concomitant]
     Route: 065
     Dates: start: 19940101
  20. TYLENOL (CAPLET) [Concomitant]
     Route: 048

REACTIONS (26)
  - ABDOMINAL PAIN [None]
  - ANGINA PECTORIS [None]
  - ANXIETY [None]
  - BLOOD CHOLESTEROL INCREASED [None]
  - BLOOD PRESSURE INADEQUATELY CONTROLLED [None]
  - BLOOD PRESSURE INCREASED [None]
  - BRONCHITIS [None]
  - CARDIAC FAILURE CONGESTIVE [None]
  - CARDIOMEGALY [None]
  - CHEST PAIN [None]
  - CHOLECYSTECTOMY [None]
  - CHRONIC OBSTRUCTIVE PULMONARY DISEASE [None]
  - CONVULSION [None]
  - DEPRESSION [None]
  - DIZZINESS [None]
  - DYSPNOEA EXERTIONAL [None]
  - HALLUCINATION [None]
  - HEADACHE [None]
  - LUMBAR SPINAL STENOSIS [None]
  - MYOCARDIAL ISCHAEMIA [None]
  - NON-CARDIAC CHEST PAIN [None]
  - OSTEOARTHRITIS [None]
  - PULMONARY HYPERTENSION [None]
  - SPINAL COLUMN STENOSIS [None]
  - TRANSIENT ISCHAEMIC ATTACK [None]
  - VENTRICULAR HYPERTROPHY [None]
